FAERS Safety Report 6157784-4 (Version None)
Quarter: 2009Q2

REPORT INFORMATION
  Report Type: 
  Country: None (occurrence: None)
  Receive Date: 20090414
  Receipt Date: 20090330
  Transmission Date: 20091009
  Serious: Yes (Hospitalization)
  Sender: FDA-Public Use
  Company Number: TPA2008A00107

PATIENT
  Age: 51 Year
  Sex: Female

DRUGS (5)
  1. ROZEREM [Suspect]
     Dosage: PER ORAL
     Route: 048
  2. SYNTHROID [Concomitant]
  3. HYDROCHLOROTHIAZIDE [Concomitant]
  4. ADVIL [Concomitant]
  5. VITAMIN B (VITAMIN B) [Concomitant]

REACTIONS (10)
  - ABNORMAL DREAMS [None]
  - AMNESIA [None]
  - DEPRESSION [None]
  - DISORIENTATION [None]
  - DYSARTHRIA [None]
  - FEELING ABNORMAL [None]
  - HEADACHE [None]
  - INCORRECT DOSE ADMINISTERED [None]
  - NIGHTMARE [None]
  - SOMNOLENCE [None]
